FAERS Safety Report 15112163 (Version 1)
Quarter: 2018Q3

REPORT INFORMATION
  Report Type: Spontaneous
  Country: US (occurrence: US)
  Receive Date: 20180705
  Receipt Date: 20180705
  Transmission Date: 20181010
  Serious: Yes (Life-Threatening, Hospitalization)
  Sender: FDA-Public Use
  Company Number: US-TEVA-2018-US-918920

PATIENT
  Age: 28 Year
  Sex: Male

DRUGS (1)
  1. LOPERAMIDE [Suspect]
     Active Substance: LOPERAMIDE
     Indication: IRRITABLE BOWEL SYNDROME
     Dosage: 100?150 TABLETS
     Route: 065

REACTIONS (4)
  - Torsade de pointes [Recovering/Resolving]
  - Cardiac arrest [Recovered/Resolved]
  - Intentional overdose [Recovering/Resolving]
  - Drug abuse [Recovering/Resolving]
